FAERS Safety Report 18123730 (Version 1)
Quarter: 2020Q3

REPORT INFORMATION
  Report Type: Spontaneous
  Country: US (occurrence: US)
  Receive Date: 20200806
  Receipt Date: 20200806
  Transmission Date: 20201103
  Serious: No
  Sender: FDA-Public Use
  Company Number: None

PATIENT
  Age: 30 Year
  Sex: Female

DRUGS (1)
  1. AMBRISENTAN TAB 5MG [Suspect]
     Active Substance: AMBRISENTAN
     Route: 048
     Dates: start: 201801

REACTIONS (4)
  - Systemic lupus erythematosus [None]
  - Condition aggravated [None]
  - Dyspnoea [None]
  - Pulmonary arterial pressure increased [None]

NARRATIVE: CASE EVENT DATE: 20200801
